FAERS Safety Report 11570560 (Version 1)
Quarter: 2015Q3

REPORT INFORMATION
  Report Type: Spontaneous
  Country: HU (occurrence: HU)
  Receive Date: 20150929
  Receipt Date: 20150929
  Transmission Date: 20151125
  Serious: Yes (Hospitalization)
  Sender: FDA-Public Use
  Company Number: HU-KADMON PHARMACEUTICALS, LLC-KAD201509-003373

PATIENT
  Age: 64 Year
  Sex: Female
  Weight: 81 kg

DRUGS (10)
  1. RIBAVIRIN. [Suspect]
     Active Substance: RIBAVIRIN
     Indication: HEPATIC CIRRHOSIS
     Dosage: FILM-COATED TABLET
     Route: 048
     Dates: start: 20150624, end: 20150727
  2. EUTHYROX 150 MG TABLET [Concomitant]
     Indication: HYPOTHYROIDISM
     Route: 048
  3. VIEKIRAX [Suspect]
     Active Substance: OMBITASVIR\PARITAPREVIR\RITONAVIR
     Indication: HEPATITIS C
     Dosage: FILM-COATED TABLET; 12.5/75/50 MG, 2 TABLETS AT A TIME (2 TABLETS, 1 IN 1 DAY)
     Route: 048
     Dates: start: 20150609
  4. EXVIERA 250 MG [Suspect]
     Active Substance: DASABUVIR
     Indication: HEPATITIS C
     Dosage: FILM COATED TABLET
     Route: 048
     Dates: start: 20150609
  5. NEBILET 2.5 MG TABLET (NEBIVOLOL) [Concomitant]
     Indication: HYPERTENSION
     Route: 048
  6. VALSARTAN 160 MG [Concomitant]
     Indication: HYPERTONIA
     Route: 048
  7. VIEKIRAX [Suspect]
     Active Substance: OMBITASVIR\PARITAPREVIR\RITONAVIR
     Indication: HEPATIC CIRRHOSIS
  8. EXVIERA 250 MG [Suspect]
     Active Substance: DASABUVIR
     Indication: HEPATIC CIRRHOSIS
  9. RIBAVIRIN. [Suspect]
     Active Substance: RIBAVIRIN
     Indication: HEPATITIS C
     Dosage: FILM-COATED TABLET
     Route: 048
     Dates: start: 20150609, end: 20150624
  10. FUROSEMIDE 20 MG [Concomitant]
     Active Substance: FUROSEMIDE
     Indication: OEDEMA PERIPHERAL

REACTIONS (3)
  - Hyperkalaemia [Recovered/Resolved]
  - Haemolysis [Unknown]
  - Anaemia [Recovered/Resolved]

NARRATIVE: CASE EVENT DATE: 20150623
